FAERS Safety Report 9407726 (Version 1)
Quarter: 2013Q3

REPORT INFORMATION
  Report Type: Spontaneous
  Country: FR (occurrence: FR)
  Receive Date: 20130718
  Receipt Date: 20130718
  Transmission Date: 20140515
  Serious: Yes (Life-Threatening, Hospitalization)
  Sender: FDA-Public Use
  Company Number: FR-ELI_LILLY_AND_COMPANY-FR201307003154

PATIENT
  Age: 52 Year
  Sex: Male

DRUGS (6)
  1. ZYPREXA VELOTAB [Suspect]
     Dosage: 5 MG, QD
     Route: 048
     Dates: end: 20130119
  2. DEPAKOTE [Suspect]
     Dosage: 500 MG, QD
     Route: 048
     Dates: end: 20130119
  3. NICOPATCH [Concomitant]
  4. URBANYL [Concomitant]
  5. LOCERYL [Concomitant]
  6. ZOLPIDEM [Concomitant]

REACTIONS (5)
  - Hyponatraemia [Recovered/Resolved]
  - Diabetic hyperosmolar coma [Recovered/Resolved]
  - Epilepsy [Unknown]
  - Infection [Unknown]
  - Off label use [Unknown]
